FAERS Safety Report 9393664 (Version 1)
Quarter: 2013Q3

REPORT INFORMATION
  Report Type: Report from Study
  Country: KR (occurrence: KR)
  Receive Date: 20130710
  Receipt Date: 20130710
  Transmission Date: 20140515
  Serious: Yes (Hospitalization)
  Sender: FDA-Public Use
  Company Number: KR-GLAXOSMITHKLINE-B0906050B

PATIENT
  Age: 54 Year
  Sex: Female
  Weight: 52.4 kg

DRUGS (8)
  1. TYKERB [Suspect]
     Indication: BREAST CANCER
     Dosage: 1250MG PER DAY
     Route: 048
     Dates: start: 20110705, end: 20120220
  2. XELODA [Concomitant]
     Indication: BREAST CANCER
     Dosage: 1500MG TWICE PER DAY
     Route: 048
     Dates: start: 20110705, end: 20120220
  3. CHOLINE ALFOSCERATE [Concomitant]
     Indication: METASTASES TO CENTRAL NERVOUS SYSTEM
     Dosage: 400MG TWICE PER DAY
     Route: 048
     Dates: start: 20110817, end: 20120222
  4. SPIRONOLACTONE [Concomitant]
     Indication: OEDEMA
     Dosage: 25MG PER DAY
     Route: 048
     Dates: start: 20111221, end: 20120222
  5. VALPROIC ACID SODIUM [Concomitant]
     Indication: EPILEPSY
     Dosage: 600MG TWICE PER DAY
     Route: 048
     Dates: start: 20111130, end: 20120222
  6. TALION [Concomitant]
     Indication: RHINITIS
     Dosage: 10MG TWICE PER DAY
     Route: 048
     Dates: start: 20111130, end: 20120222
  7. KALLIDINOGENASE [Concomitant]
     Indication: CARDIOVASCULAR DISORDER
     Dosage: 50IU TWICE PER DAY
     Route: 048
     Dates: start: 20110201, end: 20120222
  8. PERINDOPRIL ERBUMINE [Concomitant]
     Indication: PROPHYLAXIS
     Dosage: 4MG PER DAY
     Route: 048
     Dates: start: 20110201, end: 20120222

REACTIONS (2)
  - Asthenia [Recovered/Resolved]
  - Stomatitis [Recovered/Resolved]
